FAERS Safety Report 14909261 (Version 1)
Quarter: 2018Q2

REPORT INFORMATION
  Report Type: Spontaneous
  Country: BR (occurrence: BR)
  Receive Date: 20180517
  Receipt Date: 20180517
  Transmission Date: 20180711
  Serious: Yes (Death)
  Sender: FDA-Public Use
  Company Number: BR-IPSEN BIOPHARMACEUTICALS, INC.-2018-07136

PATIENT
  Age: 61 Year
  Sex: Male

DRUGS (2)
  1. SOMATULINE AUTOGEL 60MG [Suspect]
     Active Substance: LANREOTIDE ACETATE
     Indication: ACROMEGALY
     Dosage: 60 MG
     Route: 030
     Dates: start: 2015
  2. METFORMIN [Concomitant]
     Active Substance: METFORMIN HYDROCHLORIDE
     Indication: DIABETES MELLITUS
     Dosage: BEFORE THE MEALS
     Route: 048

REACTIONS (4)
  - Inappropriate schedule of drug administration [Unknown]
  - Pneumonia [Fatal]
  - Incorrect route of drug administration [Unknown]
  - Myelodysplastic syndrome [Fatal]
